FAERS Safety Report 11199973 (Version 1)
Quarter: 2015Q2

REPORT INFORMATION
  Report Type: Report from Study
  Country: RO (occurrence: RO)
  Receive Date: 20150618
  Receipt Date: 20150618
  Transmission Date: 20150821
  Serious: Yes (Hospitalization)
  Sender: FDA-Public Use
  Company Number: RO-ABBVIE-15P-135-1408113-00

PATIENT
  Age: 64 Year
  Sex: Male

DRUGS (4)
  1. ANXIAR (NON-ABBVIE) [Concomitant]
     Indication: MENTAL DISORDER
     Route: 048
  2. MADOPAR HBS [Concomitant]
     Active Substance: BENSERAZIDE HYDROCHLORIDE\LEVODOPA
     Indication: PARKINSON^S DISEASE
     Route: 048
  3. DUODOPA [Suspect]
     Active Substance: CARBIDOPA\LEVODOPA
     Indication: PARKINSON^S DISEASE
     Dosage: 16/24; MD - 7ML; CR - 4.7 ML/H; ED - 4 ML
     Route: 050
     Dates: start: 20141210
  4. CONTROLOC [Concomitant]
     Active Substance: PANTOPRAZOLE SODIUM
     Indication: DUODENAL ULCER
     Route: 048

REACTIONS (4)
  - Leukopenia [Recovered/Resolved]
  - Granuloma [Unknown]
  - Incarcerated inguinal hernia [Recovered/Resolved]
  - Haemorrhage [Unknown]

NARRATIVE: CASE EVENT DATE: 201505
